FAERS Safety Report 5774894-1 (Version None)
Quarter: 2008Q2

REPORT INFORMATION
  Report Type: 
  Country: None (occurrence: None)
  Receive Date: 20080616
  Receipt Date: 20080616
  Transmission Date: 20081010
  Serious: No
  Sender: FDA-Public Use
  Company Number: None

PATIENT
  Sex: Male
  Weight: 109 kg

DRUGS (2)
  1. CYTARABINE [Suspect]
     Dosage: 38400 MG
     Dates: end: 20071204
  2. ETOPOSIDE [Suspect]
     Dosage: 3400 MG
     Dates: end: 20071204

REACTIONS (4)
  - CLOSTRIDIAL INFECTION [None]
  - MUCOSAL INFLAMMATION [None]
  - OESOPHAGITIS [None]
  - STAPHYLOCOCCAL BACTERAEMIA [None]
